FAERS Safety Report 7444147-4 (Version None)
Quarter: 2011Q2

REPORT INFORMATION
  Report Type: 
  Country: None (occurrence: None)
  Receive Date: 20110420
  Receipt Date: 20110310
  Transmission Date: 20111010
  Serious: Yes (Other)
  Sender: FDA-Public Use
  Company Number: 2011SE07480

PATIENT
  Sex: Male

DRUGS (7)
  1. TAKEPRON (LANSOPRAZOLE) [Concomitant]
  2. URSO 250 [Concomitant]
  3. ZOSYN [Concomitant]
  4. VANCOMYCIN HYDROCHLORIDE [Concomitant]
  5. FOSCAVIR [Suspect]
     Dosage: 42 ML TID INTRAVENOUS DRIP FORMULATION: SOLUTION
     Route: 041
     Dates: start: 20100623, end: 20100716
  6. FUNGUARD MICAFUNGIN SODIUM) [Concomitant]
  7. BIOFERMIN R (STREPTOCOCCUS FAECALIS) [Concomitant]

REACTIONS (2)
  - NEPHROPATHY [None]
  - BLOOD SODIUM DECREASED [None]
